FAERS Safety Report 10033102 (Version 2)
Quarter: 2014Q2

REPORT INFORMATION
  Report Type: Report from Study
  Country: BR (occurrence: BR)
  Receive Date: 20140324
  Receipt Date: 20140613
  Transmission Date: 20141212
  Serious: Yes (Other)
  Sender: FDA-Public Use
  Company Number: PHHY2014BR034108

PATIENT
  Sex: Male
  Weight: 101 kg

DRUGS (7)
  1. SANDOSTATIN LAR [Suspect]
     Indication: ACROMEGALY
     Dosage: 20 MG, 2 AMPOULES, EVERY 28 DAYS
     Dates: start: 2006
  2. SANDOSTATIN LAR [Suspect]
     Dosage: UNK UKN, UNK
  3. ADALAT [Concomitant]
     Indication: HYPERTENSION
     Dosage: 1 DF, EVERY8 HRS
     Dates: start: 2004
  4. PROPRANOLOL [Concomitant]
     Indication: HYPERTENSION
     Dosage: 1 DF, EVERY 8 HRS
     Dates: start: 2004
  5. CAPTOPRIL [Concomitant]
     Indication: HYPERTENSION
     Dosage: 2 DF, QD
     Dates: start: 2004, end: 2006
  6. ATORVASTATIN [Concomitant]
     Indication: BLOOD CHOLESTEROL ABNORMAL
     Dosage: 1 DF, UNK
  7. PREDNISONE [Concomitant]
     Indication: BLOOD CORTISOL ABNORMAL
     Dosage: 1 DF, QD
     Dates: start: 2011

REACTIONS (14)
  - Loss of consciousness [Not Recovered/Not Resolved]
  - Nephrolithiasis [Not Recovered/Not Resolved]
  - Blood testosterone decreased [Unknown]
  - Fall [Recovering/Resolving]
  - Depression [Not Recovered/Not Resolved]
  - Blood cortisol decreased [Unknown]
  - Thyroxine decreased [Unknown]
  - Diabetes mellitus [Not Recovered/Not Resolved]
  - Balance disorder [Not Recovered/Not Resolved]
  - Pain [Not Recovered/Not Resolved]
  - Fatigue [Not Recovered/Not Resolved]
  - Headache [Recovering/Resolving]
  - Dizziness [Recovering/Resolving]
  - Gastric disorder [Not Recovered/Not Resolved]
